FAERS Safety Report 11457719 (Version 1)
Quarter: 2015Q3

REPORT INFORMATION
  Report Type: Spontaneous
  Country: CA (occurrence: CA)
  Receive Date: 20150904
  Receipt Date: 20150904
  Transmission Date: 20151125
  Serious: Yes (Other)
  Sender: FDA-Public Use
  Company Number: CA-ROCHE-1630195

PATIENT
  Age: 57 Year
  Sex: Female

DRUGS (2)
  1. TREANDA [Suspect]
     Active Substance: BENDAMUSTINE HYDROCHLORIDE
     Indication: B-CELL LYMPHOMA
     Dosage: THERAPY DURATION: 57 DAYS, SINGLE-USE VIAL; IV INFUSION ONLY; POWDER FOR SOLUTION INTRAVENOUS
     Route: 042
  2. RITUXAN [Suspect]
     Active Substance: RITUXIMAB
     Indication: B-CELL LYMPHOMA
     Dosage: THERAPY DURATION: 57 DAYS
     Route: 042

REACTIONS (2)
  - Guillain-Barre syndrome [Unknown]
  - Toxicity to various agents [Unknown]
